FAERS Safety Report 17367200 (Version 1)
Quarter: 2020Q1

REPORT INFORMATION
  Report Type: Spontaneous
  Country: FR (occurrence: FR)
  Receive Date: 20200204
  Receipt Date: 20200204
  Transmission Date: 20200409
  Serious: Yes (Other)
  Sender: FDA-Public Use
  Company Number: FR-MYLANLABS-2020M1011973

PATIENT
  Age: 23 Year
  Sex: Female

DRUGS (6)
  1. METEOSPASMYL (ALVERINE CITRATE\DIMETHICONE) [Suspect]
     Active Substance: ALVERINE CITRATE\DIMETHICONE
     Indication: ABDOMINAL PAIN
     Dosage: 3 DF, QD
     Route: 048
     Dates: start: 20190630, end: 20190902
  2. EPITOMAX [Suspect]
     Active Substance: TOPIRAMATE
     Indication: MIGRAINE
     Dosage: 2 DF, QD
     Route: 048
     Dates: start: 201906, end: 20190902
  3. OMEPRAZOLE. [Suspect]
     Active Substance: OMEPRAZOLE
     Indication: PRODUCT USED FOR UNKNOWN INDICATION
     Dosage: 1 DF, QD
     Route: 048
     Dates: start: 20190828, end: 20190902
  4. ESOMEPRAZOLE. [Suspect]
     Active Substance: ESOMEPRAZOLE MAGNESIUM
     Indication: PRODUCT USED FOR UNKNOWN INDICATION
     Dosage: 1 DF, QD
     Route: 048
     Dates: start: 20190828, end: 20190902
  5. SPASFON                            /00765801/ [Suspect]
     Active Substance: PHLOROGLUCINOL\1,3,5-TRIMETHOXYBENZENE
     Indication: ABDOMINAL PAIN
     Dosage: 6 DF, QD
     Route: 048
     Dates: start: 20190828, end: 20190902
  6. SELEXID                            /00445301/ [Suspect]
     Active Substance: PIVMECILLINAM HYDROCHLORIDE
     Indication: URINARY TRACT INFECTION
     Dosage: 4 DF, QD
     Route: 048
     Dates: start: 20190828, end: 20190902

REACTIONS (4)
  - Dysphagia [Recovered/Resolved]
  - Swelling [Recovered/Resolved]
  - Chest discomfort [Recovered/Resolved]
  - Dysgeusia [Recovered/Resolved]

NARRATIVE: CASE EVENT DATE: 20190901
